FAERS Safety Report 23428341 (Version 2)
Quarter: 2024Q2

REPORT INFORMATION
  Report Type: Spontaneous
  Country: FR (occurrence: FR)
  Receive Date: 20240122
  Receipt Date: 20240405
  Transmission Date: 20240716
  Serious: Yes (Life-Threatening, Hospitalization)
  Sender: FDA-Public Use
  Company Number: None

PATIENT
  Age: 69 Year
  Sex: Female

DRUGS (8)
  1. VORICONAZOLE [Interacting]
     Active Substance: VORICONAZOLE
     Indication: Aspergillus infection
     Dosage: 10 MILLIGRAM/KILOGRAM, QD
     Route: 042
     Dates: start: 20231207, end: 20231207
  2. VORICONAZOLE [Interacting]
     Active Substance: VORICONAZOLE
     Dosage: 8 MILLIGRAM/KILOGRAM, QD
     Route: 042
     Dates: start: 20231208, end: 20231214
  3. VORICONAZOLE [Interacting]
     Active Substance: VORICONAZOLE
     Indication: Aspergillus infection
     Dosage: 8 MILLIGRAM/KILOGRAM, QD
     Route: 048
     Dates: start: 20231215, end: 20231218
  4. AMIODARONE [Interacting]
     Active Substance: AMIODARONE
     Indication: Atrial fibrillation
     Dosage: 800 MILLIGRAM (1 TOTAL)
     Route: 048
     Dates: start: 20231214, end: 20231214
  5. AMIODARONE [Interacting]
     Active Substance: AMIODARONE
     Indication: Atrial fibrillation
     Dosage: 150 MILLIGRAM (1 TOTAL)
     Route: 042
     Dates: start: 20231218, end: 20231218
  6. PIPERACILLIN SODIUM\TAZOBACTAM SODIUM [Concomitant]
     Active Substance: PIPERACILLIN SODIUM\TAZOBACTAM SODIUM
     Dosage: 16 GRAM, QD
     Route: 042
     Dates: start: 20231204, end: 20231214
  7. VALACYCLOVIR HYDROCHLORIDE [Concomitant]
     Active Substance: VALACYCLOVIR HYDROCHLORIDE
     Dosage: 1 GRAM, QD
     Route: 048
  8. DAPTOMYCIN [Concomitant]
     Active Substance: DAPTOMYCIN
     Dosage: 500 MILLIGRAM, QD
     Route: 042
     Dates: start: 20231215, end: 20231219

REACTIONS (4)
  - Drug interaction [Recovered/Resolved]
  - Overdose [Recovered/Resolved]
  - Neurological decompensation [Recovered/Resolved]
  - Hepatic cytolysis [Recovered/Resolved]

NARRATIVE: CASE EVENT DATE: 20231218
